FAERS Safety Report 5715747-4 (Version None)
Quarter: 2008Q2

REPORT INFORMATION
  Report Type: 
  Country: None (occurrence: None)
  Receive Date: 20080424
  Receipt Date: 20080416
  Transmission Date: 20081010
  Serious: Yes (Other)
  Sender: FDA-Public Use
  Company Number: GB-BRISTOL-MYERS SQUIBB COMPANY-14138507

PATIENT
  Sex: Male

DRUGS (2)
  1. ENTECAVIR [Suspect]
     Indication: HEPATITIS B
  2. TENOFOVIR DISOPROXIL FUMARATE [Suspect]
     Indication: HEPATITIS B

REACTIONS (2)
  - PHARYNGEAL OEDEMA [None]
  - RASH [None]
